FAERS Safety Report 25132228 (Version 1)
Quarter: 2025Q1

REPORT INFORMATION
  Report Type: Report from Study
  Country: CN (occurrence: CN)
  Receive Date: 20250328
  Receipt Date: 20250328
  Transmission Date: 20250408
  Serious: Yes (Other)
  Sender: ELI LILLY AND COMPANY
  Company Number: CN-ELI_LILLY_AND_COMPANY-CN202503017170

PATIENT
  Age: 71 Year
  Sex: Male

DRUGS (15)
  1. CYRAMZA [Suspect]
     Active Substance: RAMUCIRUMAB
     Indication: Gastric cancer
     Route: 065
     Dates: start: 20250216
  2. CYRAMZA [Suspect]
     Active Substance: RAMUCIRUMAB
     Route: 065
     Dates: start: 20250316
  3. SINTILIMAB [Concomitant]
     Active Substance: SINTILIMAB
     Indication: Gastric cancer
     Dates: start: 20240314
  4. SINTILIMAB [Concomitant]
     Active Substance: SINTILIMAB
     Dates: start: 20240413
  5. SINTILIMAB [Concomitant]
     Active Substance: SINTILIMAB
     Dates: start: 20240514
  6. SINTILIMAB [Concomitant]
     Active Substance: SINTILIMAB
     Dates: start: 20240615
  7. SINTILIMAB [Concomitant]
     Active Substance: SINTILIMAB
     Dates: start: 20240914
  8. SINTILIMAB [Concomitant]
     Active Substance: SINTILIMAB
     Dates: start: 20241015
  9. SINTILIMAB [Concomitant]
     Active Substance: SINTILIMAB
     Dates: start: 20241120
  10. SINTILIMAB [Concomitant]
     Active Substance: SINTILIMAB
     Dates: start: 20241218
  11. SINTILIMAB [Concomitant]
     Active Substance: SINTILIMAB
     Dates: start: 20250118
  12. SINTILIMAB [Concomitant]
     Active Substance: SINTILIMAB
     Dates: start: 20250216
  13. SINTILIMAB [Concomitant]
     Active Substance: SINTILIMAB
     Dates: start: 20250316
  14. PACLITAXEL [Concomitant]
     Active Substance: PACLITAXEL
     Indication: Gastric cancer
     Dates: start: 20250216
  15. PACLITAXEL [Concomitant]
     Active Substance: PACLITAXEL
     Dates: start: 20250317

REACTIONS (19)
  - Gamma-glutamyltransferase increased [Not Recovered/Not Resolved]
  - Hypokalaemia [Not Recovered/Not Resolved]
  - Nephrolithiasis [Not Recovered/Not Resolved]
  - Prostatic calcification [Not Recovered/Not Resolved]
  - Neutrophil count increased [Not Recovered/Not Resolved]
  - Red blood cell count decreased [Not Recovered/Not Resolved]
  - Haemoglobin decreased [Not Recovered/Not Resolved]
  - C-reactive protein increased [Not Recovered/Not Resolved]
  - N-terminal prohormone brain natriuretic peptide increased [Not Recovered/Not Resolved]
  - Fibrin D dimer increased [Not Recovered/Not Resolved]
  - Blood fibrinogen increased [Not Recovered/Not Resolved]
  - Aspartate aminotransferase increased [Not Recovered/Not Resolved]
  - Blood alkaline phosphatase increased [Not Recovered/Not Resolved]
  - Albumin globulin ratio decreased [Not Recovered/Not Resolved]
  - Blood creatinine decreased [Not Recovered/Not Resolved]
  - Prealbumin decreased [Not Recovered/Not Resolved]
  - Albumin urine present [Not Recovered/Not Resolved]
  - Blood thyroid stimulating hormone increased [Not Recovered/Not Resolved]
  - Hypertension [Not Recovered/Not Resolved]

NARRATIVE: CASE EVENT DATE: 20250316
